FAERS Safety Report 19657041 (Version 1)
Quarter: 2021Q3

REPORT INFORMATION
  Report Type: Spontaneous
  Country: US (occurrence: US)
  Receive Date: 20210804
  Receipt Date: 20210804
  Transmission Date: 20211014
  Serious: Yes (Death)
  Sender: FDA-Public Use
  Company Number: None

PATIENT
  Sex: Female
  Weight: 11.5 kg

DRUGS (6)
  1. DEXAMETHASONE. [Concomitant]
     Active Substance: DEXAMETHASONE
  2. ONCASPAR [Concomitant]
     Active Substance: PEGASPARGASE
  3. DAUNORUBICIN [Suspect]
     Active Substance: DAUNORUBICIN
  4. CYTARABINE. [Concomitant]
     Active Substance: CYTARABINE
  5. METHOTREXATE. [Concomitant]
     Active Substance: METHOTREXATE
  6. VINCRISTINE SULFATE. [Concomitant]
     Active Substance: VINCRISTINE SULFATE

REACTIONS (3)
  - Cardiac arrest [None]
  - Death [None]
  - Dyspnoea [None]
